FAERS Safety Report 6092331-7 (Version None)
Quarter: 2009Q1

REPORT INFORMATION
  Report Type: 
  Country: None (occurrence: None)
  Receive Date: 20090225
  Receipt Date: 20090220
  Transmission Date: 20090719
  Serious: Yes (Death)
  Sender: FDA-Public Use
  Company Number: US-CELGENEUS-163-20484-09010006

PATIENT
  Sex: Male

DRUGS (5)
  1. INNOHEP [Suspect]
     Indication: THROMBOPHLEBITIS MIGRANS
     Dosage: 175 U/KG
     Route: 058
     Dates: start: 20080301, end: 20081127
  2. INNOHEP [Suspect]
  3. FLUOROURACIL [Concomitant]
     Indication: DRUG USE FOR UNKNOWN INDICATION
     Route: 065
  4. LEUKERAN [Concomitant]
     Indication: DRUG USE FOR UNKNOWN INDICATION
     Route: 065
  5. OXALIPLATIN [Concomitant]
     Indication: DRUG USE FOR UNKNOWN INDICATION
     Route: 065

REACTIONS (1)
  - COLORECTAL CANCER METASTATIC [None]
